FAERS Safety Report 8567939-7 (Version None)
Quarter: 2012Q3

REPORT INFORMATION
  Report Type: 
  Country: None (occurrence: None)
  Receive Date: 20120803
  Receipt Date: 20110804
  Transmission Date: 20120928
  Serious: No
  Sender: FDA-Public Use
  Company Number: US-ABBOTT-11P-163-0844528-00

PATIENT
  Sex: Male
  Weight: 92.616 kg

DRUGS (8)
  1. AMLODIPINE [Concomitant]
     Indication: HYPERTENSION
  2. CILOSTAZOL [Concomitant]
     Indication: ANGIOPATHY
  3. METOPROLOL TARTRATE [Concomitant]
     Indication: HYPERTENSION
  4. EFFIENT [Concomitant]
     Indication: THROMBOSIS PROPHYLAXIS
  5. NIASPAN [Suspect]
     Indication: BLOOD CHOLESTEROL INCREASED
     Dates: start: 20110101, end: 20110301
  6. NIASPAN [Suspect]
     Dates: start: 20110301
  7. DOXAZOSIN MESYLATE [Concomitant]
     Indication: HYPERTENSION
  8. NEXIUM [Concomitant]
     Indication: GASTROOESOPHAGEAL REFLUX DISEASE

REACTIONS (4)
  - ABNORMAL DREAMS [None]
  - MYALGIA [None]
  - MIDDLE INSOMNIA [None]
  - ARTHRALGIA [None]
